FAERS Safety Report 11236865 (Version 5)
Quarter: 2016Q1

REPORT INFORMATION
  Report Type: Report from Study
  Country: JP (occurrence: JP)
  Receive Date: 20150703
  Receipt Date: 20160316
  Transmission Date: 20160525
  Serious: Yes (Hospitalization)
  Sender: FDA-Public Use
  Company Number: JP-AMGEN-JPNCT2015065110

PATIENT
  Age: 76 Year
  Sex: Female
  Weight: 39 kg

DRUGS (7)
  1. CARERAM [Concomitant]
     Active Substance: IGURATIMOD
     Indication: CEREBRAL INFARCTION
     Dosage: 25 MG, UNK
     Dates: start: 20150427, end: 20150722
  2. DENOSUMAB [Suspect]
     Active Substance: DENOSUMAB
     Indication: RHEUMATOID ARTHRITIS
     Dosage: 60 MG, Q6MO
     Route: 058
     Dates: start: 20140801
  3. MEDROL [Concomitant]
     Active Substance: METHYLPREDNISOLONE
     Indication: RHEUMATOID ARTHRITIS
     Dosage: UNK
     Dates: start: 20140701
  4. RIMATIL [Concomitant]
     Active Substance: BUCILLAMINE
     Indication: RHEUMATOID ARTHRITIS
     Dosage: UNK
     Dates: start: 20150119, end: 20150622
  5. UNISIA [Concomitant]
     Active Substance: AMLODIPINE BESYLATE\CANDESARTAN CILEXETIL
     Indication: HYPERTENSION
     Dosage: UNK
     Dates: start: 20150106, end: 20150622
  6. CARERAM [Concomitant]
     Active Substance: IGURATIMOD
     Indication: RHEUMATOID ARTHRITIS
  7. EVISTA [Concomitant]
     Active Substance: RALOXIFENE HYDROCHLORIDE
     Indication: OSTEOPOROSIS
     Dosage: UNK
     Dates: start: 20140802, end: 20150722

REACTIONS (1)
  - Brain stem infarction [Recovered/Resolved with Sequelae]

NARRATIVE: CASE EVENT DATE: 20150623
